FAERS Safety Report 7708744-0 (Version None)
Quarter: 2011Q3

REPORT INFORMATION
  Report Type: 
  Country: None (occurrence: None)
  Receive Date: 20110825
  Receipt Date: 20110825
  Transmission Date: 20111222
  Serious: No
  Sender: FDA-Public Use
  Company Number: None

PATIENT
  Age: 57 Year
  Sex: Male
  Weight: 77.11 kg

DRUGS (2)
  1. EFFEXOR XR [Concomitant]
     Dosage: 300MG
     Route: 048
     Dates: start: 20010716, end: 20110805
  2. EFFEXOR XR [Suspect]
     Indication: DEPRESSION
     Dosage: 300MG
     Route: 048
     Dates: start: 20101101, end: 20110715

REACTIONS (4)
  - PRODUCT QUALITY ISSUE [None]
  - PRODUCT SUBSTITUTION ISSUE [None]
  - DEPRESSION [None]
  - CONCOMITANT DISEASE AGGRAVATED [None]
